FAERS Safety Report 7866220-9 (Version None)
Quarter: 2011Q4

REPORT INFORMATION
  Report Type: 
  Country: None (occurrence: None)
  Receive Date: 20111028
  Receipt Date: 20110512
  Transmission Date: 20120403
  Serious: No
  Sender: FDA-Public Use
  Company Number: US-GLAXOSMITHKLINE-A0927165A

PATIENT
  Age: 62 Year
  Sex: Female
  Weight: 53.2 kg

DRUGS (6)
  1. LISINOPRIL [Concomitant]
  2. SINGULAIR [Concomitant]
  3. HUMIRA [Concomitant]
  4. VENTOLIN [Concomitant]
  5. FORTEO [Concomitant]
  6. ADVAIR DISKUS 100/50 [Suspect]
     Indication: ASTHMA
     Dosage: 1PUFF TWICE PER DAY
     Route: 055
     Dates: start: 20110201

REACTIONS (2)
  - DRUG INEFFECTIVE [None]
  - INHALATION THERAPY [None]
